FAERS Safety Report 5445011-2 (Version None)
Quarter: 2007Q3

REPORT INFORMATION
  Report Type: 
  Country: None (occurrence: None)
  Receive Date: 20070906
  Receipt Date: 20070829
  Transmission Date: 20080115
  Serious: Yes (Other)
  Sender: FDA-Public Use
  Company Number: US-ROCHE-514118

PATIENT
  Age: 46 Year
  Sex: Female
  Weight: 78.5 kg

DRUGS (2)
  1. CAPECITABINE [Suspect]
     Dosage: REPORTED AS ^EIGHT 500 MG PILLS PER DAY.^
     Route: 048
  2. TYKERB [Concomitant]

REACTIONS (4)
  - ABASIA [None]
  - BLISTER INFECTED [None]
  - OEDEMA PERIPHERAL [None]
  - SKIN INFLAMMATION [None]
